FAERS Safety Report 5019458-2 (Version None)
Quarter: 2006Q2

REPORT INFORMATION
  Report Type: 
  Country: None (occurrence: None)
  Receive Date: 20060530
  Receipt Date: 20060515
  Transmission Date: 20061013
  Serious: Yes (Hospitalization)
  Sender: FDA-Public Use
  Company Number: EM2006-0196

PATIENT
  Sex: Female

DRUGS (2)
  1. TOBI [Suspect]
     Indication: BRONCHIECTASIS
     Dosage: 300 MG, BID , INHALATION  : 300 MG, QD, INHALATION
     Route: 055
     Dates: start: 20060124, end: 20060101
  2. TOBI [Suspect]
     Indication: BRONCHIECTASIS
     Dosage: 300 MG, BID , INHALATION  : 300 MG, QD, INHALATION
     Route: 055
     Dates: start: 20060101, end: 20060305

REACTIONS (7)
  - DYSPHONIA [None]
  - JUGULAR VEIN THROMBOSIS [None]
  - LEMIERRE SYNDROME [None]
  - MALAISE [None]
  - MUSCULOSKELETAL STIFFNESS [None]
  - NECK PAIN [None]
  - THROMBOSIS [None]
